FAERS Safety Report 10084324 (Version 1)
Quarter: 2014Q2

REPORT INFORMATION
  Report Type: Spontaneous
  Country: US (occurrence: None)
  Receive Date: 20140415
  Receipt Date: 20140415
  Transmission Date: 20141212
  Serious: Yes (Death)
  Sender: FDA-Public Use
  Company Number: SYM-2014-19708

PATIENT
  Age: 78 Year
  Sex: Female

DRUGS (1)
  1. XENAZINE [Suspect]
     Indication: CHOREA
     Route: 048
     Dates: start: 201103, end: 201403

REACTIONS (1)
  - Death [None]
